FAERS Safety Report 6576740-5 (Version None)
Quarter: 2010Q1

REPORT INFORMATION
  Report Type: 
  Country: None (occurrence: None)
  Receive Date: 20100210
  Receipt Date: 20100202
  Transmission Date: 20100710
  Serious: Yes (Other)
  Sender: FDA-Public Use
  Company Number: US-ROCHE-683536

PATIENT
  Sex: Male
  Weight: 29 kg

DRUGS (5)
  1. VALIUM [Suspect]
     Dosage: DOSAGE: HS
     Route: 065
     Dates: start: 20050101
  2. DEPAKOTE [Suspect]
     Indication: STATUS EPILEPTICUS
     Dosage: DRUG: DEPAKOTE TABLETS.
     Route: 048
     Dates: start: 20091205, end: 20091216
  3. DEPAKOTE [Suspect]
     Dosage: TWO TABLETS AT BEDTIME.
     Route: 048
  4. DEPAKOTE ER [Suspect]
     Indication: DRUG USE FOR UNKNOWN INDICATION
     Route: 065
  5. VALPROATE SODIUM [Suspect]
     Indication: STATUS EPILEPTICUS
     Dosage: DRUG: DEPAKOTE GENERIC SUN PHARMACEUTICALS.
     Route: 065
     Dates: start: 20090401, end: 20091205

REACTIONS (11)
  - ABDOMINAL PAIN [None]
  - DIARRHOEA [None]
  - DRUG LEVEL FLUCTUATING [None]
  - DRUG TOXICITY [None]
  - HALLUCINATION [None]
  - HOT FLUSH [None]
  - PALLOR [None]
  - PRODUCT SUBSTITUTION ISSUE [None]
  - RASH MACULAR [None]
  - SOMNOLENCE [None]
  - VOMITING [None]
